FAERS Safety Report 7258853-8 (Version None)
Quarter: 2011Q1

REPORT INFORMATION
  Report Type: 
  Country: None (occurrence: None)
  Receive Date: 20110129
  Receipt Date: 20100702
  Transmission Date: 20110831
  Serious: No
  Sender: FDA-Public Use
  Company Number: US-ABBOTT-10P-163-0650912-00

PATIENT
  Sex: Female

DRUGS (10)
  1. HUMIRA [Suspect]
     Indication: CROHN'S DISEASE
     Dosage: FIRST DOSE
     Route: 058
     Dates: start: 20100608, end: 20100608
  2. IMURAN [Concomitant]
     Indication: CROHN'S DISEASE
  3. IRON [Concomitant]
     Indication: MINERAL SUPPLEMENTATION
  4. BENTYL [Concomitant]
     Indication: CROHN'S DISEASE
     Dosage: DAILY AS NEEDED
  5. BENTYL [Concomitant]
     Indication: PAIN
  6. PREDNISONE [Concomitant]
     Indication: CROHN'S DISEASE
  7. ASACOL [Concomitant]
     Indication: CROHN'S DISEASE
  8. VITAMIN D [Concomitant]
     Indication: PRODUCT USED FOR UNKNOWN INDICATION
  9. HUMIRA [Suspect]
     Route: 058
  10. CANASA [Concomitant]
     Indication: CROHN'S DISEASE
     Dosage: DAILY

REACTIONS (1)
  - INJECTION SITE PAIN [None]
